FAERS Safety Report 14190972 (Version 1)
Quarter: 2017Q4

REPORT INFORMATION
  Report Type: Spontaneous
  Country: US (occurrence: US)
  Receive Date: 20171115
  Receipt Date: 20171115
  Transmission Date: 20180321
  Serious: No
  Sender: FDA-Public Use
  Company Number: US-ALLERGAN-1700137US

PATIENT
  Age: 53 Year
  Sex: Female
  Weight: 68 kg

DRUGS (1)
  1. NORETHINDRONE ACET;ETHINYL ESTRADIOL UNK [Suspect]
     Active Substance: ETHINYL ESTRADIOL\NORETHINDRONE ACETATE
     Indication: UTERINE LEIOMYOMA
     Route: 048

REACTIONS (6)
  - Product substitution issue [None]
  - Peripheral swelling [None]
  - Nausea [Not Recovered/Not Resolved]
  - Blood pressure increased [Unknown]
  - Joint swelling [None]
  - Peripheral swelling [Unknown]

NARRATIVE: CASE EVENT DATE: 20161223
